FAERS Safety Report 11516492 (Version 2)
Quarter: 2015Q4

REPORT INFORMATION
  Report Type: Spontaneous
  Country: FR (occurrence: FR)
  Receive Date: 20150917
  Receipt Date: 20151002
  Transmission Date: 20160304
  Serious: Yes (Life-Threatening, Other)
  Sender: FDA-Public Use
  Company Number: FR-ASTRAZENECA-2015SE88101

PATIENT
  Age: 23316 Day
  Sex: Male

DRUGS (11)
  1. LAROXYL [Suspect]
     Active Substance: AMITRIPTYLINE
     Dosage: 5 DROPS IN THE MORNING AND 10 DROPS AT NIGHT DAILY
     Route: 048
     Dates: start: 20150518, end: 20150604
  2. RIFADINE [Suspect]
     Active Substance: RIFAMPIN
     Route: 042
     Dates: start: 20150523, end: 20150526
  3. PERFALGAN [Suspect]
     Active Substance: ACETAMINOPHEN
     Route: 042
     Dates: start: 20150518, end: 20150605
  4. ACUPAN [Concomitant]
     Active Substance: NEFOPAM HYDROCHLORIDE
     Dates: start: 20150519
  5. GENTAMICINE PANPHARMA [Suspect]
     Active Substance: GENTAMICIN
     Route: 042
     Dates: start: 20150527, end: 20150531
  6. INEXIUM [Suspect]
     Active Substance: ESOMEPRAZOLE
     Route: 048
     Dates: start: 20150518, end: 20150604
  7. LYRICA [Suspect]
     Active Substance: PREGABALIN
     Dosage: 50 MG IN THE MORNING AND 75 MG AT NIGHT DAILY
     Route: 048
     Dates: start: 20150520, end: 20150531
  8. MORPHINE [Concomitant]
     Active Substance: MORPHINE
     Dates: start: 20150530
  9. ORBENINE [Suspect]
     Active Substance: CLOXACILLIN SODIUM
     Route: 042
     Dates: start: 20150523, end: 20150604
  10. LYRICA [Suspect]
     Active Substance: PREGABALIN
     Dosage: 50 MG IN THE MORNING AND 75 MG AT NIGHT DAILY
     Route: 048
     Dates: start: 20150602, end: 20150604
  11. LOVENOX [Suspect]
     Active Substance: ENOXAPARIN SODIUM
     Route: 065
     Dates: start: 20150518, end: 20150604

REACTIONS (5)
  - Oxygen saturation decreased [Recovered/Resolved]
  - Intervertebral discitis [Unknown]
  - Drug reaction with eosinophilia and systemic symptoms [Recovered/Resolved]
  - Staphylococcal bacteraemia [Unknown]
  - Hypotension [Recovered/Resolved]

NARRATIVE: CASE EVENT DATE: 20150604
